FAERS Safety Report 21289874 (Version 3)
Quarter: 2022Q3

REPORT INFORMATION
  Report Type: Spontaneous
  Country: JP (occurrence: JP)
  Receive Date: 20220902
  Receipt Date: 20220923
  Transmission Date: 20221026
  Serious: Yes (Death, Hospitalization, Other)
  Sender: FDA-Public Use
  Company Number: JP-ORGANON-O2209JPN000144

PATIENT
  Sex: Male

DRUGS (1)
  1. EZETIMIBE [Suspect]
     Active Substance: EZETIMIBE
     Indication: Phytosterolaemia
     Dosage: UNK
     Route: 048

REACTIONS (3)
  - Acute myocardial infarction [Fatal]
  - Shunt stenosis [Unknown]
  - Shunt infection [Recovering/Resolving]
